FAERS Safety Report 4507816-1 (Version None)
Quarter: 2004Q4

REPORT INFORMATION
  Report Type: 
  Country: None (occurrence: None)
  Receive Date: 20041018
  Receipt Date: 20040713
  Transmission Date: 20050328
  Serious: No
  Sender: FDA-Public Use
  Company Number: 205370

PATIENT
  Age: 53 Year
  Sex: Female
  Weight: 54.4 kg

DRUGS (11)
  1. XOLAIR [Suspect]
     Indication: ASTHMA
     Dosage: 150MG, Q4W, SUBCUTANEOUS
     Route: 058
     Dates: start: 20040310
  2. PAXIL [Concomitant]
  3. PEPCID [Concomitant]
  4. AMBIEN [Concomitant]
  5. SINGULAIR [Concomitant]
  6. ALBUTEROL INHALER (ALBUTEROL SULFATE, ALBUTEROL) [Concomitant]
  7. ALLEGRA [Concomitant]
  8. ALBUTEROL NEBULIZER (ALBUTEROL SULFATE, ALBUTEROL) [Concomitant]
  9. VOLMAX (ALBUTEROL, ALBUTEROL SULFATE) [Concomitant]
  10. ADVAIR DISKUS (SALMETEROL XINAFOATE, FLUTICASOE PROPINOATE) [Concomitant]
  11. NASONEX [Concomitant]

REACTIONS (1)
  - HYPOAESTHESIA [None]
